FAERS Safety Report 5395622-8 (Version None)
Quarter: 2007Q3

REPORT INFORMATION
  Report Type: 
  Country: None (occurrence: None)
  Receive Date: 20070720
  Receipt Date: 20070718
  Transmission Date: 20080115
  Serious: Yes (Death)
  Sender: FDA-Public Use
  Company Number: THQ2007A00697

PATIENT
  Sex: Female

DRUGS (1)
  1. PIOGLITAZONE HCL [Suspect]
     Dosage: PER ORAL
     Route: 048

REACTIONS (1)
  - DEATH [None]
